FAERS Safety Report 10153730 (Version 5)
Quarter: 2015Q3

REPORT INFORMATION
  Report Type: Spontaneous
  Country: IT (occurrence: IT)
  Receive Date: 20140506
  Receipt Date: 20150707
  Transmission Date: 20151125
  Serious: Yes (Hospitalization)
  Sender: FDA-Public Use
  Company Number: IT-ACCORD-023470

PATIENT
  Age: 73 Year
  Sex: Male

DRUGS (4)
  1. FLUOROURACILE ACCORD [Suspect]
     Active Substance: FLUOROURACIL
     Indication: PRODUCT USED FOR UNKNOWN INDICATION
     Dosage: FLUOROURACILE AHC 50 MG/ML SOLUTION FOR INJECTION/INFUSION, 1GLASS VIAL 20 ML (ACCORD HEALTHCARE)
     Route: 042
     Dates: start: 20131218, end: 20140305
  2. OXALIPLATIN SUN [Suspect]
     Active Substance: OXALIPLATIN
     Indication: PRODUCT USED FOR UNKNOWN INDICATION
     Dosage: OXALIPLATINO SUN 5 MG/ML CONCENTRATE FOR SOLUTION FOR INFUSION, 5 GLASS VIALS 100 MG/20 ML.
     Route: 042
     Dates: start: 20131218, end: 20140305
  3. IRINOTECAN/IRINOTECAN HYDROCHLORIDE [Suspect]
     Active Substance: IRINOTECAN HYDROCHLORIDE
     Indication: COLON CANCER METASTATIC
     Route: 042
     Dates: start: 20150331, end: 20150401
  4. AVASTIN [Suspect]
     Active Substance: BEVACIZUMAB
     Indication: COLON CANCER METASTATIC
     Dosage: 1 AMPOULE 400 MG
     Route: 042
     Dates: start: 20131218, end: 20140305

REACTIONS (1)
  - Gastrointestinal hypomotility [Unknown]

NARRATIVE: CASE EVENT DATE: 20140315
